FAERS Safety Report 7736674-7 (Version None)
Quarter: 2011Q3

REPORT INFORMATION
  Report Type: 
  Country: None (occurrence: None)
  Receive Date: 20110908
  Receipt Date: 20110905
  Transmission Date: 20111222
  Serious: Yes (Other)
  Sender: FDA-Public Use
  Company Number: FR-PFIZER INC-2011207008

PATIENT
  Sex: Male

DRUGS (3)
  1. ATORVASTATIN CALCIUM [Suspect]
     Dosage: 40 MG, DAILY
  2. ATORVASTATIN CALCIUM [Suspect]
     Dosage: 10 MG, UNK
  3. ATORVASTATIN CALCIUM [Suspect]
     Dosage: 20 MG, UNK

REACTIONS (5)
  - TRANSAMINASES INCREASED [None]
  - CONTUSION [None]
  - MUSCLE SPASMS [None]
  - MUSCLE DISORDER [None]
  - BLOOD CREATINE PHOSPHOKINASE INCREASED [None]
